FAERS Safety Report 23115737 (Version 1)
Quarter: 2023Q4

REPORT INFORMATION
  Report Type: Spontaneous
  Country: US (occurrence: US)
  Receive Date: 20231027
  Receipt Date: 20231027
  Transmission Date: 20240109
  Serious: Yes (Other)
  Sender: FDA-Public Use
  Company Number: US-PFIZER INC-PV202300171679

PATIENT
  Age: 8 Year
  Sex: Female

DRUGS (2)
  1. THYMOCYTE IMMUNE GLOBULIN NOS [Suspect]
     Active Substance: THYMOCYTE IMMUNE GLOBULIN NOS
     Indication: Myelodysplastic syndrome
     Dosage: 40 MG/KG, DAILY
  2. CYCLOSPORINE [Suspect]
     Active Substance: CYCLOSPORINE
     Indication: Myelodysplastic syndrome
     Dosage: UNK

REACTIONS (9)
  - Pneumonia [Unknown]
  - Enteritis [Unknown]
  - Colitis [Unknown]
  - Bronchitis [Unknown]
  - Pharyngitis [Unknown]
  - Lip ulceration [Unknown]
  - Lip infection [Unknown]
  - Drug ineffective for unapproved indication [Unknown]
  - Off label use [Unknown]
